FAERS Safety Report 7395519-8 (Version None)
Quarter: 2011Q1

REPORT INFORMATION
  Report Type: 
  Country: None (occurrence: None)
  Receive Date: 20110325
  Receipt Date: 20110317
  Transmission Date: 20110831
  Serious: Yes (Other)
  Sender: FDA-Public Use
  Company Number: ABR_00025_2011

PATIENT
  Age: 50 Year

DRUGS (9)
  1. VITAMIN K /01542801/ [Concomitant]
  2. PLASMA [Concomitant]
  3. RED BLOOD CELLS, CONCENTRATED [Concomitant]
  4. ERYTHROMYCIN [Suspect]
     Indication: ENDOSCOPY
     Dosage: (BEFORE ESOPHAGOGASTRODUODENOSCOPY INTRAVENOUS)), (10 HOURS LATER INTRAVENOUS))
     Route: 042
  5. PANTOPRAZOLE [Concomitant]
  6. AMIODARONE (AMIODARONE) [Suspect]
     Indication: CARDIOVERSION
     Dosage: (300 MG INTRAVENOUS))
     Route: 042
  7. CIPROFLOXACIN [Suspect]
     Indication: ANTIBIOTIC PROPHYLAXIS
     Dosage: (DF)
  8. INSULIN [Concomitant]
  9. HEMOPRESSIN [Concomitant]

REACTIONS (3)
  - TORSADE DE POINTES [None]
  - ATRIAL FIBRILLATION [None]
  - TACHYARRHYTHMIA [None]
